FAERS Safety Report 9356148 (Version 1)
Quarter: 2013Q2

REPORT INFORMATION
  Report Type: Spontaneous
  Country: ES (occurrence: ES)
  Receive Date: 20130619
  Receipt Date: 20130619
  Transmission Date: 20140414
  Serious: Yes (Life-Threatening, Hospitalization, Other)
  Sender: FDA-Public Use
  Company Number: ES-ACTAVIS-2013-10471

PATIENT
  Age: 53 Year
  Sex: Female

DRUGS (3)
  1. TACROLIMUS (UNKNOWN) [Suspect]
     Indication: IMMUNOSUPPRESSANT DRUG THERAPY
     Dosage: 0.2 MG/KG, DAILY
     Route: 065
     Dates: start: 200907
  2. PREDNISONE                         /00044702/ [Concomitant]
     Indication: IMMUNOSUPPRESSANT DRUG THERAPY
     Dosage: 20 MG, DAILY
     Route: 065
     Dates: start: 200907
  3. MYCOPHENOLATE MOFETIL [Concomitant]
     Indication: IMMUNOSUPPRESSANT DRUG THERAPY
     Dosage: 1000 MG, DAILY
     Route: 065
     Dates: start: 200907

REACTIONS (2)
  - Encephalopathy [Recovered/Resolved]
  - Locked-in syndrome [Recovered/Resolved]
